FAERS Safety Report 5961065-9 (Version None)
Quarter: 2008Q4

REPORT INFORMATION
  Report Type: 
  Country: None (occurrence: None)
  Receive Date: 20081119
  Receipt Date: 20081105
  Transmission Date: 20090506
  Serious: Yes (Hospitalization)
  Sender: FDA-Public Use
  Company Number: 233718J08USA

PATIENT
  Age: 43 Year
  Sex: Female
  Weight: 64 kg

DRUGS (6)
  1. REBIF [Suspect]
     Indication: MULTIPLE SCLEROSIS
     Dosage: 44 MCG, 3 IN 1 WEEKS, SUBCUTANEOUS
     Route: 058
     Dates: start: 20031230
  2. AMBIEN [Concomitant]
  3. GABAPENTIN [Concomitant]
  4. BACLOFEN [Concomitant]
  5. PROVIGIL [Concomitant]
  6. VESICARE [Concomitant]

REACTIONS (4)
  - BALANCE DISORDER [None]
  - FALL [None]
  - SKULL FRACTURE [None]
  - TREATMENT NONCOMPLIANCE [None]
